FAERS Safety Report 15695589 (Version 2)
Quarter: 2019Q1

REPORT INFORMATION
  Report Type: Spontaneous
  Country: VN (occurrence: VN)
  Receive Date: 20181206
  Receipt Date: 20190108
  Transmission Date: 20190417
  Serious: Yes (Other)
  Sender: FDA-Public Use
  Company Number: IND-VN-009507513-1811VNM011222

PATIENT

DRUGS (2)
  1. ESMERON [Suspect]
     Active Substance: ROCURONIUM BROMIDE
     Dosage: STENGTH: 50MG/5ML
     Dates: start: 20181122
  2. ESMERON [Suspect]
     Active Substance: ROCURONIUM BROMIDE
     Dosage: STENGTH: 50MG/5MLUNK
     Dates: start: 20181122

REACTIONS (1)
  - Drug effect decreased [Recovered/Resolved]

NARRATIVE: CASE EVENT DATE: 20181122
